FAERS Safety Report 6642156-6 (Version None)
Quarter: 2010Q1

REPORT INFORMATION
  Report Type: 
  Country: None (occurrence: None)
  Receive Date: 20100319
  Receipt Date: 20100312
  Transmission Date: 20100710
  Serious: Yes (Hospitalization)
  Sender: FDA-Public Use
  Company Number: AU-BRISTOL-MYERS SQUIBB COMPANY-15016173

PATIENT
  Age: 71 Year
  Sex: Female
  Weight: 64 kg

DRUGS (7)
  1. CISPLATIN [Suspect]
     Indication: NON-SMALL CELL LUNG CANCER
     Route: 042
     Dates: start: 20091014, end: 20091106
  2. ALIMTA [Suspect]
     Indication: NON-SMALL CELL LUNG CANCER
     Dosage: 14OCT09-6NOV09(24 DAYS);20JAN10 ONGOING;LAST DOSE ON 19FEB10;
     Route: 042
     Dates: start: 20091014
  3. FOLIC ACID [Concomitant]
     Indication: PROPHYLAXIS
     Dates: start: 20091009
  4. VITAMIN B-12 [Concomitant]
     Indication: PROPHYLAXIS
     Dates: start: 20091009
  5. DEXAMETHASONE [Concomitant]
     Indication: PROPHYLAXIS
     Dates: start: 20091009
  6. THIAMINE [Concomitant]
  7. ENOXAPARIN SODIUM [Concomitant]

REACTIONS (3)
  - DEPRESSION [None]
  - FATIGUE [None]
  - MUCOSAL INFLAMMATION [None]
